FAERS Safety Report 8016017-4 (Version None)
Quarter: 2011Q4

REPORT INFORMATION
  Report Type: 
  Country: None (occurrence: None)
  Receive Date: 20111230
  Receipt Date: 20111230
  Transmission Date: 20120403
  Serious: Yes (Disabling)
  Sender: FDA-Public Use
  Company Number: None

PATIENT
  Age: 13 Year
  Sex: Male

DRUGS (1)
  1. ABILIFY [Suspect]
     Indication: AUTISM
     Dosage: 10MG
     Route: 048
     Dates: start: 20040515, end: 20090615

REACTIONS (3)
  - LIVER FUNCTION TEST ABNORMAL [None]
  - HEPATITIS [None]
  - BLOOD TRIGLYCERIDES INCREASED [None]
